FAERS Safety Report 5373271-5 (Version None)
Quarter: 2007Q2

REPORT INFORMATION
  Report Type: 
  Country: None (occurrence: None)
  Receive Date: 20070628
  Receipt Date: 20070618
  Transmission Date: 20071010
  Serious: Yes (Hospitalization)
  Sender: FDA-Public Use
  Company Number: NL-JNJFOC-20070504085

PATIENT
  Sex: Male
  Weight: 75 kg

DRUGS (1)
  1. REMINYL RETARD [Suspect]
     Indication: DRUG USE FOR UNKNOWN INDICATION

REACTIONS (3)
  - FISTULA DISCHARGE [None]
  - NAUSEA [None]
  - RECTAL CANCER [None]
